FAERS Safety Report 9282950 (Version 2)
Quarter: 2013Q2

REPORT INFORMATION
  Report Type: Spontaneous
  Country: MX (occurrence: MX)
  Receive Date: 20130510
  Receipt Date: 20130604
  Transmission Date: 20140414
  Serious: Yes (Other)
  Sender: FDA-Public Use
  Company Number: MX-BAYER-2013-057593

PATIENT
  Sex: Male

DRUGS (2)
  1. LEVITRA [Suspect]
     Indication: SEXUAL DYSFUNCTION
     Dosage: 20 MG, QD
     Route: 048
     Dates: start: 201303, end: 201303
  2. PROZAC [Concomitant]
     Indication: DEPRESSION
     Dosage: UNK UNK, QD
     Route: 048

REACTIONS (3)
  - Transient ischaemic attack [Recovered/Resolved]
  - Facial paresis [Recovered/Resolved]
  - Hemiparesis [Recovered/Resolved]
